FAERS Safety Report 7405321-6 (Version None)
Quarter: 2011Q2

REPORT INFORMATION
  Report Type: 
  Country: None (occurrence: None)
  Receive Date: 20110411
  Receipt Date: 20110329
  Transmission Date: 20111010
  Serious: Yes (Other)
  Sender: FDA-Public Use
  Company Number: PHHY2010DE44836

PATIENT
  Sex: Male

DRUGS (2)
  1. LEPONEX [Suspect]
     Indication: SCHIZOAFFECTIVE DISORDER
     Dosage: UNK
     Dates: start: 19700101, end: 19800101
  2. LEPONEX [Suspect]
     Dosage: 50 MG, QD
     Route: 048
     Dates: start: 19900101

REACTIONS (2)
  - MONOCYTOSIS [None]
  - EOSINOPENIA [None]
